FAERS Safety Report 7194123-4 (Version None)
Quarter: 2010Q4

REPORT INFORMATION
  Report Type: 
  Country: None (occurrence: None)
  Receive Date: 20101223
  Receipt Date: 20101213
  Transmission Date: 20110411
  Serious: Yes (Other)
  Sender: FDA-Public Use
  Company Number: GXKR2010SI14132

PATIENT
  Sex: Female

DRUGS (3)
  1. SERTRALINE (NGX) [Interacting]
     Route: 065
  2. AMITRIPTYLINE (NGX) [Suspect]
     Route: 065
  3. LORAZEPAM [Interacting]
     Route: 065

REACTIONS (2)
  - DRUG INTERACTION [None]
  - SEROTONIN SYNDROME [None]
